FAERS Safety Report 4951381-1 (Version None)
Quarter: 2006Q1

REPORT INFORMATION
  Report Type: 
  Country: None (occurrence: None)
  Receive Date: 20060323
  Receipt Date: 20021101
  Transmission Date: 20060701
  Serious: Yes (Other)
  Sender: FDA-Public Use
  Company Number: DE-BRISTOL-MYERS SQUIBB COMPANY-13313796

PATIENT
  Age: 49 Year
  Sex: Male
  Weight: 68 kg

DRUGS (12)
  1. ZERIT [Suspect]
     Indication: HIV INFECTION
     Dates: start: 19971201, end: 20010801
  2. VIDEX [Suspect]
     Indication: HIV INFECTION
     Dates: start: 20000301, end: 20010801
  3. ZIDOVUDINE [Concomitant]
     Indication: HIV INFECTION
     Dates: start: 19930601, end: 19970901
  4. ZALCITABINE [Concomitant]
     Indication: HIV INFECTION
     Dates: start: 19930601, end: 19970901
  5. NELFINAVIR [Concomitant]
     Indication: HIV INFECTION
     Dates: start: 19971201, end: 19980101
  6. LAMIVUDINE [Concomitant]
     Indication: HIV INFECTION
     Dates: start: 19970301, end: 19980101
  7. SAQUINAVIR [Concomitant]
     Indication: HIV INFECTION
     Dates: start: 19980101, end: 20000301
  8. NEVIRAPINE [Concomitant]
     Indication: HIV INFECTION
     Dates: start: 19990201, end: 20000301
  9. INDINIVIR SULFATE [Concomitant]
     Indication: HIV INFECTION
     Dates: start: 20000501, end: 20000901
  10. RITONAVIR [Concomitant]
     Indication: HIV INFECTION
     Dates: start: 20000501, end: 20001101
  11. LOPINAVIR [Concomitant]
     Indication: HIV INFECTION
     Dates: start: 20000901, end: 20001101
  12. ABACAVIR [Concomitant]
     Indication: HIV INFECTION
     Dates: start: 20010101, end: 20010801

REACTIONS (25)
  - ANAEMIA [None]
  - BLOOD CREATINE PHOSPHOKINASE INCREASED [None]
  - CARDIAC ANEURYSM [None]
  - CARDIAC FAILURE CONGESTIVE [None]
  - CHRONIC OBSTRUCTIVE PULMONARY DISEASE [None]
  - CORONARY ARTERY DISEASE [None]
  - DIARRHOEA [None]
  - DRUG INEFFECTIVE [None]
  - HYPERCHOLESTEROLAEMIA [None]
  - HYPOAESTHESIA [None]
  - HYPOREFLEXIA [None]
  - INTRACARDIAC THROMBUS [None]
  - KAPOSI'S SARCOMA [None]
  - LIPASE INCREASED [None]
  - MUSCLE SPASMS [None]
  - MYOCARDIAL INFARCTION [None]
  - NAUSEA [None]
  - NEPHROLITHIASIS [None]
  - OPPORTUNISTIC INFECTION [None]
  - ORAL CANDIDIASIS [None]
  - PAIN IN EXTREMITY [None]
  - PANCREATITIS [None]
  - PARAESTHESIA [None]
  - PNEUMONIA [None]
  - POLYNEUROPATHY [None]
